FAERS Safety Report 12563814 (Version 1)
Quarter: 2016Q3

REPORT INFORMATION
  Report Type: Spontaneous
  Country: US (occurrence: US)
  Receive Date: 20160716
  Receipt Date: 20160716
  Transmission Date: 20161109
  Serious: Yes (Other)
  Sender: FDA-Public Use
  Company Number: US-CELGENEUS-USA-2016072901

PATIENT
  Sex: Male

DRUGS (1)
  1. THALOMID [Suspect]
     Active Substance: THALIDOMIDE
     Indication: RHEUMATOID ARTHRITIS
     Dosage: 150 MILLIGRAM
     Route: 048
     Dates: start: 201606, end: 2016

REACTIONS (2)
  - Oedema [Unknown]
  - Nausea [Unknown]

NARRATIVE: CASE EVENT DATE: 2016
